FAERS Safety Report 4524248-0 (Version None)
Quarter: 2004Q4

REPORT INFORMATION
  Report Type: 
  Country: None (occurrence: None)
  Receive Date: 20041119
  Receipt Date: 20040929
  Transmission Date: 20050328
  Serious: No
  Sender: FDA-Public Use
  Company Number: PHEH2004US10450

PATIENT
  Age: 75 Year
  Sex: Female

DRUGS (5)
  1. ZELNORM [Suspect]
     Indication: IRRITABLE BOWEL SYNDROME
     Dosage: 6 MG, BID, ORAL
     Route: 048
     Dates: start: 20040915
  2. SYNTHROID (SERTRALINE HYDROCHLORIDE) [Concomitant]
  3. TRIAMTERENE AND HYDROCHLOROTHIAZID ^HARRIS^ [Concomitant]
  4. MACRODANTIN [Concomitant]
  5. PREVACID [Concomitant]

REACTIONS (1)
  - URINARY INCONTINENCE [None]
